FAERS Safety Report 8996010 (Version 1)
Quarter: 2013Q1

REPORT INFORMATION
  Report Type: Spontaneous
  Country: US (occurrence: US)
  Receive Date: 20130103
  Receipt Date: 20130103
  Transmission Date: 20140127
  Serious: No
  Sender: FDA-Public Use
  Company Number: US-ABBOTT-12P-163-0931820-00

PATIENT
  Sex: Female
  Weight: 71.73 kg

DRUGS (6)
  1. SYNTHROID [Suspect]
     Indication: HYPOTHYROIDISM
     Dates: end: 201204
  2. SYNTHROID [Suspect]
     Dosage: 2 DAYS PER WEEK
     Dates: start: 201204
  3. SYNTHROID [Suspect]
     Dosage: 5 DAYS PER WEEK
     Dates: start: 201204
  4. ADVAIR [Concomitant]
     Indication: CHRONIC OBSTRUCTIVE PULMONARY DISEASE
  5. SINGULAIR [Concomitant]
     Indication: CHRONIC OBSTRUCTIVE PULMONARY DISEASE
  6. BRONAVIL [Concomitant]
     Indication: PHYTOTHERAPY

REACTIONS (4)
  - Weight increased [Unknown]
  - Weight loss poor [Unknown]
  - Dyspnoea [Unknown]
  - Night sweats [Unknown]
